FAERS Safety Report 10187159 (Version 1)
Quarter: 2014Q2

REPORT INFORMATION
  Report Type: Spontaneous
  Country: US (occurrence: US)
  Receive Date: 20140522
  Receipt Date: 20140522
  Transmission Date: 20141212
  Serious: Yes (Hospitalization)
  Sender: FDA-Public Use
  Company Number: US-BAYER-2014-073575

PATIENT
  Age: 29 Year
  Sex: Female

DRUGS (11)
  1. YASMIN [Suspect]
  2. OMEPRAZOLE [Concomitant]
  3. CYANOCOBALAMIN [Concomitant]
  4. NASAREL [Concomitant]
  5. GENTAMICIN [Concomitant]
     Route: 047
  6. BETAMETHASONE [Concomitant]
  7. ACYCLOVIR [ACICLOVIR] [Concomitant]
  8. TRIAMCINOLONE [Concomitant]
  9. DICYCLOMINE [Concomitant]
  10. NITROFURANTOIN [Concomitant]
  11. CEPHALEXIN [Concomitant]

REACTIONS (1)
  - Pulmonary embolism [None]
